FAERS Safety Report 9009959 (Version 1)
Quarter: 2013Q1

REPORT INFORMATION
  Report Type: Spontaneous
  Country: US (occurrence: US)
  Receive Date: 20130110
  Receipt Date: 20130110
  Transmission Date: 20140127
  Serious: Yes (Hospitalization, Other)
  Sender: FDA-Public Use
  Company Number: US-009507513-1301USA001851

PATIENT
  Age: 69 Year
  Sex: Male

DRUGS (5)
  1. MONTELUKAST SODIUM [Suspect]
     Route: 048
  2. HYDROXYUREA [Suspect]
     Indication: LEUKOCYTOSIS
  3. RAMIPRIL [Suspect]
     Indication: HYPERTENSION
  4. DITROPAN [Suspect]
  5. ISOSORBIDE MONONITRATE [Suspect]
     Indication: CHRONIC OBSTRUCTIVE PULMONARY DISEASE

REACTIONS (4)
  - White blood cell count decreased [Unknown]
  - Malaise [Unknown]
  - Leukocytosis [Unknown]
  - Bone marrow disorder [Unknown]
